FAERS Safety Report 5322832-8 (Version None)
Quarter: 2007Q2

REPORT INFORMATION
  Report Type: 
  Country: None (occurrence: None)
  Receive Date: 20070511
  Receipt Date: 20070503
  Transmission Date: 20071010
  Serious: Yes (Life-Threatening, Hospitalization)
  Sender: FDA-Public Use
  Company Number: FR-ABBOTT-07P-056-0363659-00

PATIENT
  Sex: Male
  Weight: 68 kg

DRUGS (12)
  1. HUMIRA [Suspect]
     Indication: RHEUMATOID ARTHRITIS
     Route: 058
     Dates: start: 20061215, end: 20070112
  2. PREDNISONE TAB [Suspect]
     Indication: RHEUMATOID ARTHRITIS
     Route: 048
     Dates: end: 20070112
  3. PREDNISONE TAB [Suspect]
  4. METHOTREXATE [Suspect]
     Indication: RHEUMATOID ARTHRITIS
     Route: 048
     Dates: start: 20061215, end: 20070215
  5. DI-GESIC [Concomitant]
     Indication: ANALGESIC EFFECT
     Route: 048
     Dates: end: 20070101
  6. CELECOXIB [Concomitant]
     Indication: RHEUMATOID ARTHRITIS
     Route: 048
     Dates: end: 20070212
  7. CELECOXIB [Concomitant]
     Route: 048
     Dates: end: 20070212
  8. FOLIC ACID [Concomitant]
     Indication: RHEUMATOID ARTHRITIS
     Route: 048
     Dates: end: 20070101
  9. GLIBENCLAMIDE [Concomitant]
     Indication: DIABETES MELLITUS NON-INSULIN-DEPENDENT
     Route: 048
     Dates: end: 20070112
  10. PIOGLITAZONE [Concomitant]
     Indication: DIABETES MELLITUS
     Route: 048
     Dates: end: 20070112
  11. INSULINE ASPARTE [Concomitant]
     Indication: DIABETES MELLITUS
     Route: 058
  12. METFORMIN HCL [Concomitant]
     Indication: DIABETES MELLITUS
     Route: 048

REACTIONS (2)
  - PLEURISY [None]
  - PULMONARY TUBERCULOSIS [None]
